FAERS Safety Report 25571094 (Version 1)
Quarter: 2025Q3

REPORT INFORMATION
  Report Type: Spontaneous
  Country: BR (occurrence: BR)
  Receive Date: 20250717
  Receipt Date: 20250717
  Transmission Date: 20251021
  Serious: Yes (Other)
  Sender: JOHNSON AND JOHNSON
  Company Number: BR-JNJFOC-20250715867

PATIENT
  Age: 40 Year
  Sex: Female

DRUGS (3)
  1. SPRAVATO [Interacting]
     Active Substance: ESKETAMINE
     Indication: Depression
     Route: 045
     Dates: start: 202411
  2. SPRAVATO [Interacting]
     Active Substance: ESKETAMINE
     Indication: Suicidal ideation
  3. SPRAVATO [Interacting]
     Active Substance: ESKETAMINE
     Indication: Borderline personality disorder

REACTIONS (3)
  - Adrenal insufficiency [Unknown]
  - Substance use [Unknown]
  - Drug interaction [Unknown]

NARRATIVE: CASE EVENT DATE: 20250101
